FAERS Safety Report 13695556 (Version 1)
Quarter: 2017Q2

REPORT INFORMATION
  Report Type: Spontaneous
  Country: BR (occurrence: BR)
  Receive Date: 20170627
  Receipt Date: 20170627
  Transmission Date: 20170830
  Serious: Yes (Other)
  Sender: FDA-Public Use
  Company Number: BR-VALIDUS PHARMACEUTICALS LLC-BR-2015VAL000391

PATIENT

DRUGS (3)
  1. ROCALTROL [Suspect]
     Active Substance: CALCITRIOL
     Indication: VITAMIN SUPPLEMENTATION
     Dosage: UNK
     Route: 048
  2. SIGMATRIOL [Concomitant]
     Active Substance: CALCITRIOL
     Indication: MINERAL SUPPLEMENTATION
     Dosage: UNK
  3. ROCALTROL [Suspect]
     Active Substance: CALCITRIOL
     Indication: MINERAL SUPPLEMENTATION
     Dosage: 0.25 ?G, DAILY 30 CAPSULES IN THE MORNING
     Route: 048

REACTIONS (3)
  - Blood calcium decreased [Unknown]
  - Rheumatoid arthritis [Not Recovered/Not Resolved]
  - Bone pain [Recovering/Resolving]
